FAERS Safety Report 8765398 (Version 1)
Quarter: 2012Q4

REPORT INFORMATION
  Report Type: 
  Country: DE (occurrence: DE)
  Receive Date: 20120831
  Receipt Date: 20120831
  Transmission Date: 20130627
  Serious: Yes (Other)
  Sender: FDA-Public Use
  Company Number: DE-ROXANE LABORATORIES, INC.-2012-RO-01761RO

PATIENT
  Age: 70 Year
  Sex: Male

DRUGS (5)
  1. DEXAMETHASONE [Suspect]
     Indication: PROSTATE CANCER
     Dosage: 1.5 mg
  2. DEXAMETHASONE [Suspect]
     Dosage: 0.75 mg
     Dates: start: 200904
  3. CELECOXIB [Suspect]
     Indication: PROSTATE CANCER
     Dosage: 400 mg
  4. LENALIDOMIDE [Suspect]
     Indication: PROSTATE CANCER
     Dosage: 25 mg
  5. LENALIDOMIDE [Suspect]
     Dosage: 15 mg

REACTIONS (8)
  - Cushing^s syndrome [Unknown]
  - Furuncle [Unknown]
  - Leukopenia [Unknown]
  - Thrombocytopenia [Unknown]
  - Anaemia [Unknown]
  - Dysgeusia [Unknown]
  - Neuropathy peripheral [Unknown]
  - Osteoarthritis [Unknown]
